FAERS Safety Report 8251890-6 (Version None)
Quarter: 2012Q2

REPORT INFORMATION
  Report Type: 
  Country: None (occurrence: None)
  Receive Date: 20120402
  Receipt Date: 20120326
  Transmission Date: 20120825
  Serious: Yes (Hospitalization, Disabling, Other)
  Sender: FDA-Public Use
  Company Number: US-TEVA-330663USA

PATIENT
  Age: 34 Year
  Sex: Female

DRUGS (3)
  1. ACETAMINOPHEN AND OXYCODONE HCL [Suspect]
     Indication: MULTIPLE DRUG OVERDOSE INTENTIONAL
     Route: 065
  2. QUETIAPINE [Suspect]
     Indication: MULTIPLE DRUG OVERDOSE INTENTIONAL
     Route: 065
  3. CHLORAL HYDRATE [Suspect]
     Indication: MULTIPLE DRUG OVERDOSE INTENTIONAL
     Route: 065

REACTIONS (9)
  - RENAL FAILURE [None]
  - TRANSAMINASES INCREASED [None]
  - MYELOPATHY [None]
  - INTENTIONAL OVERDOSE [None]
  - HEPATIC FUNCTION ABNORMAL [None]
  - MULTI-ORGAN DISORDER [None]
  - ANAEMIA [None]
  - ELECTROCARDIOGRAM QT PROLONGED [None]
  - LEUKOPENIA [None]
